FAERS Safety Report 5577468-0 (Version None)
Quarter: 2007Q4

REPORT INFORMATION
  Report Type: 
  Country: None (occurrence: None)
  Receive Date: 20071228
  Receipt Date: 20071217
  Transmission Date: 20080405
  Serious: Yes (Other)
  Sender: FDA-Public Use
  Company Number: PR-PFIZER INC-2007105514

PATIENT
  Sex: Male
  Weight: 70.8 kg

DRUGS (5)
  1. DILANTIN [Suspect]
  2. LYRICA [Interacting]
     Indication: NEUROPATHY PERIPHERAL
  3. KLONOPIN [Interacting]
  4. TEGRETOL [Concomitant]
  5. ALL OTHER THERAPEUTIC PRODUCTS [Concomitant]

REACTIONS (9)
  - ALCOHOL POISONING [None]
  - CEREBROVASCULAR ACCIDENT [None]
  - COORDINATION ABNORMAL [None]
  - DRUG INTERACTION [None]
  - EYE DISORDER [None]
  - IMPAIRED WORK ABILITY [None]
  - NEUROPATHY PERIPHERAL [None]
  - OSTEOPENIA [None]
  - SPEECH DISORDER [None]
